FAERS Safety Report 21469934 (Version 1)
Quarter: 2022Q4

REPORT INFORMATION
  Report Type: 
  Country: None (occurrence: JP)
  Receive Date: 20221018
  Receipt Date: 20221018
  Transmission Date: 20230112
  Serious: No
  Sender: FDA-Public Use
  Company Number: JP-Rubicon Research Private Limited-2133928

PATIENT
  Age: 62 Year
  Sex: Male

DRUGS (1)
  1. PREGABALIN [Suspect]
     Active Substance: PREGABALIN

REACTIONS (3)
  - Allodynia [None]
  - Drug ineffective [None]
  - Hypoaesthesia [None]
